FAERS Safety Report 24923602 (Version 1)
Quarter: 2025Q1

REPORT INFORMATION
  Report Type: Spontaneous
  Country: IT (occurrence: IT)
  Receive Date: 20250204
  Receipt Date: 20250204
  Transmission Date: 20250408
  Serious: Yes (Death, Hospitalization, Other)
  Sender: TEVA
  Company Number: None

PATIENT
  Age: 57 Year
  Sex: Female
  Weight: 58 kg

DRUGS (7)
  1. DOCETAXEL [Suspect]
     Active Substance: DOCETAXEL
     Indication: Product used for unknown indication
     Dosage: 20 MG/1 ML; BATCH NUMBER: AA0116-2;?120 MG TOTAL DOSE (75 MG/M2) 1 DAY EVERY 21 FOR 6 CYCLES (1 C...
     Route: 042
     Dates: start: 20240618, end: 20241017
  2. PAROXETINE HYDROCHLORIDE [Concomitant]
     Active Substance: PAROXETINE HYDROCHLORIDE
     Indication: Product used for unknown indication
     Route: 048
  3. SPORANOX [Concomitant]
     Active Substance: ITRACONAZOLE
     Indication: Product used for unknown indication
  4. CYCLOPHOSPHAMIDE [Concomitant]
     Active Substance: CYCLOPHOSPHAMIDE
     Indication: Product used for unknown indication
     Dosage: 500 MG;?CYCLOPHOSPHAMIDE BAXTER MULTIDOSE BAG - TOTAL DOSE 950 MG (600 MG/M2) DAYS 1 EVERY 21 FOR...
     Route: 042
     Dates: start: 20240618, end: 20241017
  5. TAD [Concomitant]
     Indication: Product used for unknown indication
     Dosage: 600 MG/4 ML
     Route: 030
  6. PANTOPRAZOLE SODIUM [Concomitant]
     Active Substance: PANTOPRAZOLE SODIUM
     Indication: Product used for unknown indication
  7. BUTYLSCOPOLAMINE BROMIDE [Concomitant]
     Active Substance: BUTYLSCOPOLAMINE BROMIDE
     Indication: Product used for unknown indication

REACTIONS (1)
  - Necrotising colitis [Fatal]

NARRATIVE: CASE EVENT DATE: 20241027
